FAERS Safety Report 4354752-X (Version None)
Quarter: 2004Q2

REPORT INFORMATION
  Report Type: 
  Country: None (occurrence: None)
  Receive Date: 20040507
  Receipt Date: 20040402
  Transmission Date: 20050107
  Serious: Yes (Death, Other)
  Sender: FDA-Public Use
  Company Number: BE-BRISTOL-MYERS SQUIBB COMPANY-12549713

PATIENT
  Age: 89 Year
  Sex: Female
  Weight: 38 kg

DRUGS (16)
  1. CEFEPIME FOR INJ [Suspect]
     Indication: URINARY TRACT INFECTION
     Route: 042
     Dates: start: 20040302, end: 20040312
  2. CEFEPIME FOR INJ [Suspect]
     Indication: SINUSITIS
     Route: 042
     Dates: start: 20040302, end: 20040312
  3. CAPOTEN [Concomitant]
  4. CORDARONE [Concomitant]
  5. FRAXIPARINE [Concomitant]
     Route: 058
  6. MOVICOL [Concomitant]
     Dosage: SACHET
  7. MAXITROL [Concomitant]
  8. ACETYLCYSTEINE [Concomitant]
     Dosage: AEROSOL
  9. ACTRAPID [Concomitant]
  10. ZYPREXA [Concomitant]
  11. ZANTAC [Concomitant]
     Dosage: 1-3X/DAY
     Route: 042
  12. CORUNO [Concomitant]
  13. CARDIOASPIRIN [Concomitant]
  14. EFFEXOR [Concomitant]
  15. XANAX [Concomitant]
  16. NITRODERM [Concomitant]

REACTIONS (3)
  - COMA [None]
  - EPILEPSY [None]
  - RENAL IMPAIRMENT [None]
